FAERS Safety Report 6582751-6 (Version None)
Quarter: 2010Q1

REPORT INFORMATION
  Report Type: 
  Country: None (occurrence: None)
  Receive Date: 20100216
  Receipt Date: 20100204
  Transmission Date: 20100710
  Serious: Yes (Other)
  Sender: FDA-Public Use
  Company Number: GB-PFIZER INC-2010015327

PATIENT
  Age: 49 Year
  Sex: Female

DRUGS (5)
  1. MARAVIROC [Suspect]
     Indication: HIV INFECTION
     Dosage: UNK
  2. TRUVADA [Suspect]
     Indication: HIV INFECTION
  3. RALTEGRAVIR POTASSIUM [Suspect]
     Indication: HIV INFECTION
     Dosage: UNK
  4. DARUNAVIR ETHANOLATE [Suspect]
     Indication: HIV INFECTION
     Dosage: UNK
  5. ETRAVIRINE [Suspect]
     Indication: HIV INFECTION

REACTIONS (3)
  - HYPERGLYCAEMIA [None]
  - HYPERLIPIDAEMIA [None]
  - PROTEINURIA [None]
